FAERS Safety Report 11239747 (Version 1)
Quarter: 2015Q3

REPORT INFORMATION
  Report Type: Report from Study
  Country: TH (occurrence: TH)
  Receive Date: 20150706
  Receipt Date: 20150706
  Transmission Date: 20151125
  Serious: Yes (Death, Hospitalization, Other)
  Sender: FDA-Public Use
  Company Number: PHHY2014TH083745

PATIENT
  Sex: Female

DRUGS (3)
  1. GLIVEC [Suspect]
     Active Substance: IMATINIB MESYLATE
     Dosage: 400 MG, UNK
     Route: 065
  2. GLIVEC [Suspect]
     Active Substance: IMATINIB MESYLATE
     Dosage: 600 MG, UNK
     Route: 065
  3. GLIVEC [Suspect]
     Active Substance: IMATINIB MESYLATE
     Indication: CHRONIC MYELOID LEUKAEMIA
     Dosage: 300 MG, UNK
     Route: 065

REACTIONS (8)
  - Drug intolerance [Unknown]
  - White blood cell count increased [Unknown]
  - Neutrophil count decreased [Unknown]
  - Sepsis [Fatal]
  - Upper gastrointestinal haemorrhage [Fatal]
  - Chronic myeloid leukaemia recurrent [Unknown]
  - Splenomegaly [Unknown]
  - Drug resistance [Unknown]
